FAERS Safety Report 11377689 (Version 1)
Quarter: 2015Q3

REPORT INFORMATION
  Report Type: Spontaneous
  Country: US (occurrence: US)
  Receive Date: 20150811
  Receipt Date: 20150811
  Transmission Date: 20151125
  Serious: No
  Sender: FDA-Public Use
  Company Number: US-ELI_LILLY_AND_COMPANY-US200906004534

PATIENT
  Age: 45 Year
  Sex: Female

DRUGS (4)
  1. HUMULIN 70/30 [Suspect]
     Active Substance: INSULIN HUMAN
  2. ADVIL [Concomitant]
     Active Substance: IBUPROFEN
     Indication: PAIN IN EXTREMITY
  3. SINUS MEDICATION [Concomitant]
     Active Substance: UNSPECIFIED INGREDIENT
  4. HUMULIN 70/30 [Suspect]
     Active Substance: INSULIN HUMAN
     Dosage: UNK, 2/D
     Dates: start: 1993

REACTIONS (6)
  - Headache [Recovered/Resolved]
  - Stress [Unknown]
  - Malaise [Unknown]
  - Blood glucose decreased [Recovered/Resolved]
  - Anger [Unknown]
  - Dizziness [Recovered/Resolved]

NARRATIVE: CASE EVENT DATE: 200906
